FAERS Safety Report 21519666 (Version 1)
Quarter: 2022Q4

REPORT INFORMATION
  Report Type: Spontaneous
  Country: NL (occurrence: NL)
  Receive Date: 20221028
  Receipt Date: 20221028
  Transmission Date: 20230113
  Serious: Yes (Hospitalization)
  Sender: FDA-Public Use
  Company Number: None

PATIENT
  Sex: Female
  Weight: 61 kg

DRUGS (16)
  1. FUROSEMIDE [Suspect]
     Active Substance: FUROSEMIDE
     Indication: Oedema
     Dosage: STRENGTH: 40MG, 1 DD 1 TABLET
     Dates: start: 20220419, end: 20220621
  2. LISINOPRIL [Suspect]
     Active Substance: LISINOPRIL
     Indication: Myocardial infarction
     Dosage: STRENGTH: 2.5MG, 1 DD 1
     Dates: start: 20200819, end: 20220622
  3. ASPIRIN [Concomitant]
     Active Substance: ASPIRIN
     Dosage: STRENGTH: 80MG
  4. ATORVASTATIN [Concomitant]
     Active Substance: ATORVASTATIN
     Dosage: STRENGTH: 40MG
  5. CALCIUM CARBONATE\CHOLECALCIFEROL [Concomitant]
     Active Substance: CALCIUM CARBONATE\CHOLECALCIFEROL
     Dosage: STRENGTH: 2.5 G/800 IU (1000 MG CA)
  6. CHOLECALCIFEROL [Concomitant]
     Active Substance: CHOLECALCIFEROL
     Dosage: STRENGTH: 5600 IU
  7. DAPAGLIFLOZIN [Concomitant]
     Active Substance: DAPAGLIFLOZIN
     Dosage: STRENGTH: 10 MG
  8. FAMOTIDINE [Concomitant]
     Active Substance: FAMOTIDINE
     Dosage: STRENGTH: 20 MG
  9. HYDROXOCOBALAMIN [Concomitant]
     Active Substance: HYDROXOCOBALAMIN
     Dosage: STRENGTH: 500 MCG/ML
  10. INSULIN DEGLUDEC [Concomitant]
     Active Substance: INSULIN DEGLUDEC
     Dosage: STRENGTH: 100 U/ML
  11. ISOSORBIDE MONONITRATE [Concomitant]
     Active Substance: ISOSORBIDE MONONITRATE
     Dosage: STRENGTH: 120 MG
  12. INSULIN ASPART [Concomitant]
     Active Substance: INSULIN ASPART
     Dosage: STRENGTH: 100 U/ML
  13. METOPROLOL [Concomitant]
     Active Substance: METOPROLOL
     Dosage: STRENGTH: 50 MG
  14. OMEPRAZOLE [Concomitant]
     Active Substance: OMEPRAZOLE
     Dosage: STRENGTH: 20 MG
  15. TICAGRELOR [Concomitant]
     Active Substance: TICAGRELOR
     Dosage: STRENGTH: 90MG
  16. ISOSORBIDE MONONITRATE [Concomitant]
     Active Substance: ISOSORBIDE MONONITRATE
     Dosage: STRENGTH: 5MG

REACTIONS (2)
  - Hypokalaemia [Recovering/Resolving]
  - Acute kidney injury [Recovering/Resolving]
